FAERS Safety Report 4986905-1 (Version None)
Quarter: 2006Q2

REPORT INFORMATION
  Report Type: 
  Country: None (occurrence: None)
  Receive Date: 20060501
  Receipt Date: 20060419
  Transmission Date: 20061013
  Serious: Yes (Other)
  Sender: FDA-Public Use
  Company Number: PHBS2006SE05674

PATIENT
  Age: 63 Year
  Sex: Male

DRUGS (10)
  1. AREDIA [Suspect]
     Indication: MULTIPLE MYELOMA
     Dosage: 90 MG, QMO
     Route: 065
     Dates: start: 20000501
  2. ZOMETA [Suspect]
     Indication: MULTIPLE MYELOMA
     Route: 065
     Dates: start: 20020301, end: 20050501
  3. NEURONTIN [Concomitant]
     Route: 065
  4. NOBLIGAN [Concomitant]
     Route: 065
  5. TENORMIN [Concomitant]
     Route: 065
  6. TRYPTIZOL [Concomitant]
     Route: 065
  7. TROMBYL [Concomitant]
     Route: 065
  8. LASIX [Concomitant]
     Route: 065
  9. SPIRONOLACTONE [Concomitant]
     Route: 065
  10. ENALAPRIL MALEATE [Concomitant]
     Route: 065

REACTIONS (2)
  - DENTURE WEARER [None]
  - OSTEONECROSIS [None]
